FAERS Safety Report 7569496-0 (Version None)
Quarter: 2011Q2

REPORT INFORMATION
  Report Type: 
  Country: None (occurrence: None)
  Receive Date: 20110624
  Receipt Date: 20110607
  Transmission Date: 20111010
  Serious: No
  Sender: FDA-Public Use
  Company Number: 2009BI013413

PATIENT
  Age: 44 Year
  Sex: Female

DRUGS (1)
  1. TYSABRI [Suspect]
     Indication: MULTIPLE SCLEROSIS
     Route: 042
     Dates: start: 20081205, end: 20090424

REACTIONS (3)
  - HYPERSENSITIVITY [None]
  - PLATELET COUNT DECREASED [None]
  - DRUG SPECIFIC ANTIBODY PRESENT [None]
